FAERS Safety Report 4713319-1 (Version None)
Quarter: 2005Q3

REPORT INFORMATION
  Report Type: 
  Country: None (occurrence: None)
  Receive Date: 20050713
  Receipt Date: 20041203
  Transmission Date: 20060218
  Serious: Yes (Hospitalization)
  Sender: FDA-Public Use
  Company Number: GB-GLAXOSMITHKLINE-B0359795A

PATIENT
  Sex: Female

DRUGS (2)
  1. SEROXAT [Suspect]
     Dosage: 30MG UNKNOWN
     Route: 065
     Dates: start: 19991101, end: 20000801
  2. ACETAMINOPHEN [Suspect]
     Route: 048

REACTIONS (4)
  - ILL-DEFINED DISORDER [None]
  - OVERDOSE [None]
  - SUICIDAL IDEATION [None]
  - SUICIDE ATTEMPT [None]
